APPROVED DRUG PRODUCT: FULVESTRANT
Active Ingredient: FULVESTRANT
Strength: 250MG/5ML (50MG/ML)
Dosage Form/Route: SOLUTION;INTRAMUSCULAR
Application: A211730 | Product #001
Applicant: APOTEX INC
Approved: Jun 11, 2021 | RLD: No | RS: No | Type: DISCN